FAERS Safety Report 11623093 (Version 1)
Quarter: 2015Q4

REPORT INFORMATION
  Report Type: Spontaneous
  Country: US (occurrence: US)
  Receive Date: 20151013
  Receipt Date: 20151013
  Transmission Date: 20160304
  Serious: No
  Sender: FDA-Public Use
  Company Number: US-JNJFOC-20150406877

PATIENT
  Age: 79 Year
  Sex: Female
  Weight: 69.85 kg

DRUGS (2)
  1. TYLENOL EXTRA STRENGTH [Suspect]
     Active Substance: ACETAMINOPHEN
     Indication: BACK PAIN
     Dosage: 1 TABLET, 3 TO 4 TIMES A DAY
     Route: 048
     Dates: end: 20150407
  2. TYLENOL EXTRA STRENGTH [Suspect]
     Active Substance: ACETAMINOPHEN
     Indication: ARTHRITIS
     Dosage: 1 TABLET, 3 TO 4 TIMES A DAY
     Route: 048
     Dates: end: 20150407

REACTIONS (1)
  - Incorrect dose administered [Unknown]
